FAERS Safety Report 6898471-4 (Version None)
Quarter: 2010Q3

REPORT INFORMATION
  Report Type: 
  Country: None (occurrence: None)
  Receive Date: 20100802
  Receipt Date: 20071026
  Transmission Date: 20110219
  Serious: No
  Sender: FDA-Public Use
  Company Number: US-PFIZER INC-2007071256

PATIENT
  Sex: Female
  Weight: 83.9 kg

DRUGS (8)
  1. LYRICA [Suspect]
     Indication: CERVICAL MYELOPATHY
     Dates: start: 20060301, end: 20060801
  2. LYRICA [Suspect]
     Indication: CERVICOBRACHIAL SYNDROME
  3. BACLOFEN [Concomitant]
  4. PROGESTERONE [Concomitant]
  5. SAW PALMETTO [Concomitant]
  6. ALL OTHER THERAPEUTIC PRODUCTS [Concomitant]
  7. ENZYME PREPARATIONS [Concomitant]
  8. MILK THISTLE [Concomitant]

REACTIONS (1)
  - ALOPECIA [None]
